FAERS Safety Report 24177483 (Version 2)
Quarter: 2024Q3

REPORT INFORMATION
  Report Type: Spontaneous
  Country: US (occurrence: US)
  Receive Date: 20240806
  Receipt Date: 20240820
  Transmission Date: 20241017
  Serious: No
  Sender: LEO PHARM
  Company Number: US-LEO Pharma-372494

PATIENT
  Age: 75 Year
  Sex: Male

DRUGS (2)
  1. ADBRY [Suspect]
     Active Substance: TRALOKINUMAB-LDRM
     Indication: Eczema
     Dosage: 4 INJECTIONS OF ADBRY? FOR THE LOADING DOSE
     Route: 058
  2. ADBRY [Suspect]
     Active Substance: TRALOKINUMAB-LDRM
     Indication: Eczema
     Dosage: 2 INJECTIONS EVERY TWO WEEKS
     Route: 058

REACTIONS (6)
  - Lacrimation increased [Unknown]
  - Sinus disorder [Recovering/Resolving]
  - Rhinorrhoea [Recovering/Resolving]
  - Ocular hyperaemia [Unknown]
  - Blepharitis [Unknown]
  - Eye pruritus [Unknown]
